FAERS Safety Report 7466563-7 (Version None)
Quarter: 2011Q2

REPORT INFORMATION
  Report Type: 
  Country: None (occurrence: None)
  Receive Date: 20110509
  Receipt Date: 20110110
  Transmission Date: 20111010
  Serious: No
  Sender: FDA-Public Use
  Company Number: US-SANOFI-AVENTIS-2011SA002300

PATIENT
  Age: 51 Year
  Sex: Female

DRUGS (2)
  1. APIDRA [Suspect]
     Dosage: 25-35 UNITS (SLIDING SCALE) THRICE DAILY
     Route: 058
     Dates: start: 20090101
  2. LANTUS [Suspect]
     Dates: start: 20090101

REACTIONS (1)
  - DYSPEPSIA [None]
